FAERS Safety Report 7920486-5 (Version None)
Quarter: 2011Q4

REPORT INFORMATION
  Report Type: 
  Country: None (occurrence: None)
  Receive Date: 20111117
  Receipt Date: 20111109
  Transmission Date: 20120403
  Serious: Yes (Disabling, Other)
  Sender: FDA-Public Use
  Company Number: PHEH2009US16962

PATIENT
  Sex: Female

DRUGS (16)
  1. AMOX-CLAV [Concomitant]
     Route: 048
  2. OXYCODONE HCL [Concomitant]
     Route: 048
  3. METHYLPREDNISOLONE [Concomitant]
  4. ALKERAN [Concomitant]
     Dosage: 6 MG, DAILY FOR 7 DAYS EVERY 6 WEEKS
  5. FENTANYL [Concomitant]
  6. NAPROXEN [Concomitant]
     Route: 048
  7. HYDROCODONE BITARTRATE [Concomitant]
     Route: 048
  8. ASPIRIN [Concomitant]
     Dosage: 81 MG, PER DAY
  9. TRAMADOL HCL [Concomitant]
     Route: 048
  10. AMLODIPINE BESYLATE [Concomitant]
     Dosage: 5 MG, DAILY
  11. IBUPROFEN [Concomitant]
  12. SENNACOTS [Concomitant]
  13. ZOMETA [Suspect]
  14. PENICILLIN VK [Concomitant]
     Route: 048
  15. CHLORHEXIDINE GLUCONATE [Concomitant]
  16. THALIDOMIDE [Concomitant]
     Dosage: 50 MG, DAILY

REACTIONS (28)
  - ANHEDONIA [None]
  - ANAEMIA [None]
  - LOOSE TOOTH [None]
  - INJURY [None]
  - ANXIETY [None]
  - HYPERTENSION [None]
  - RENAL DISORDER [None]
  - PRIMARY SEQUESTRUM [None]
  - FATIGUE [None]
  - EXPOSED BONE IN JAW [None]
  - HYPOAESTHESIA [None]
  - HERPES ZOSTER [None]
  - POST HERPETIC NEURALGIA [None]
  - VAGINAL HAEMORRHAGE [None]
  - SLEEP APNOEA SYNDROME [None]
  - NIGHT SWEATS [None]
  - FALL [None]
  - BRONCHITIS [None]
  - PAIN [None]
  - BONE LESION [None]
  - RADIUS FRACTURE [None]
  - MULTIPLE MYELOMA [None]
  - MONOCLONAL GAMMOPATHY [None]
  - OSTEONECROSIS OF JAW [None]
  - PAIN IN JAW [None]
  - DENTURE WEARER [None]
  - RENAL ARTERY ARTERIOSCLEROSIS [None]
  - CARDIOMEGALY [None]
